FAERS Safety Report 7126713-9 (Version None)
Quarter: 2010Q4

REPORT INFORMATION
  Report Type: 
  Country: None (occurrence: None)
  Receive Date: 20101129
  Receipt Date: 20101119
  Transmission Date: 20110411
  Serious: Yes (Hospitalization)
  Sender: FDA-Public Use
  Company Number: GB-ABBOTT-10P-167-0666386-00

PATIENT
  Age: 6 Year
  Sex: Male

DRUGS (1)
  1. EPILIM [Suspect]
     Indication: ACCIDENTAL DRUG INTAKE BY CHILD
     Dosage: ONCE
     Route: 048

REACTIONS (2)
  - ACCIDENTAL DRUG INTAKE BY CHILD [None]
  - PRODUCT QUALITY ISSUE [None]
